FAERS Safety Report 21935906 (Version 2)
Quarter: 2023Q1

REPORT INFORMATION
  Report Type: Spontaneous
  Country: TR (occurrence: TR)
  Receive Date: 20230201
  Receipt Date: 20230206
  Transmission Date: 20230418
  Serious: No
  Sender: FDA-Public Use
  Company Number: TR-BAXTER-2023BAX010746

PATIENT
  Age: 40 Year
  Sex: Male
  Weight: 70 kg

DRUGS (2)
  1. EXTRANEAL [Suspect]
     Active Substance: CALCIUM CHLORIDE\ICODEXTRIN\MAGNESIUM CHLORIDE\SODIUM CHLORIDE\SODIUM LACTATE
     Indication: Peritoneal dialysis
     Dosage: UNK
     Route: 033
  2. CALCIUM CL\DEXTROSE\MAGNESIUM CL\SODIUM BICAR\SODIUM CL\SODIUM LACT [Suspect]
     Active Substance: CALCIUM CL\DEXTROSE\MAGNESIUM CL\SODIUM BICAR\SODIUM CL\SODIUM LACT
     Indication: Peritoneal dialysis
     Route: 033

REACTIONS (1)
  - Procedural pain [Not Recovered/Not Resolved]
